FAERS Safety Report 6369562-1 (Version None)
Quarter: 2009Q3

REPORT INFORMATION
  Report Type: 
  Country: None (occurrence: None)
  Receive Date: 20090923
  Receipt Date: 20090915
  Transmission Date: 20100115
  Serious: Yes (Other)
  Sender: FDA-Public Use
  Company Number: TW-JNJFOC-20090904668

PATIENT
  Age: 51 Year
  Sex: Female

DRUGS (4)
  1. RISPERIDONE [Suspect]
     Route: 065
  2. RISPERIDONE [Suspect]
     Route: 065
  3. RISPERIDONE [Suspect]
     Indication: SCHIZOPHRENIA, PARANOID TYPE
     Dosage: 6-8 MG PER DAY
     Route: 065
  4. TRIHEXYPHENIDYL HCL [Concomitant]
     Route: 065

REACTIONS (3)
  - DROOLING [None]
  - PARKINSONISM [None]
  - WEIGHT DECREASED [None]
